FAERS Safety Report 5733047-3 (Version None)
Quarter: 2008Q2

REPORT INFORMATION
  Report Type: 
  Country: None (occurrence: None)
  Receive Date: 20080505
  Receipt Date: 20080206
  Transmission Date: 20081010
  Serious: Yes (Other)
  Sender: FDA-Public Use
  Company Number: PHEH2008US01686

PATIENT
  Age: 64 Year
  Sex: Male

DRUGS (6)
  1. EXELON [Suspect]
     Indication: DEMENTIA ALZHEIMER'S TYPE
     Dosage: 4.6 MG/DAY, QD, TRANSDERMAL
     Route: 062
     Dates: start: 20071031, end: 20080106
  2. PAXIL [Concomitant]
  3. WELLBUTRIN [Concomitant]
  4. LIPITOR [Concomitant]
  5. VIAGRA [Concomitant]
  6. METFORMIN HCL [Concomitant]

REACTIONS (1)
  - APPLICATION SITE RASH [None]
